FAERS Safety Report 8871731 (Version 1)
Quarter: 2012Q4

REPORT INFORMATION
  Report Type: Spontaneous
  Country: US (occurrence: None)
  Receive Date: 20121024
  Receipt Date: 20121024
  Transmission Date: 20130627
  Serious: Yes (Other)
  Sender: FDA-Public Use
  Company Number: 2012SGN00467

PATIENT
  Sex: Male

DRUGS (2)
  1. ADCETRIS [Suspect]
     Indication: HODGKIN^S LYMPHOMA
  2. DECADRON [Concomitant]

REACTIONS (1)
  - Cataract [None]
